FAERS Safety Report 13179321 (Version 1)
Quarter: 2017Q1

REPORT INFORMATION
  Report Type: Spontaneous
  Country: FR (occurrence: FR)
  Receive Date: 20170202
  Receipt Date: 20170202
  Transmission Date: 20170428
  Serious: Yes (Hospitalization)
  Sender: FDA-Public Use
  Company Number: FR-TEVA-733259ROM

PATIENT
  Sex: Female

DRUGS (8)
  1. BROMAZEPAM ARROW [Suspect]
     Active Substance: BROMAZEPAM
     Dosage: 4.5 MILLIGRAM DAILY;
     Route: 048
  2. INEXIUM 20 MG [Concomitant]
     Active Substance: ESOMEPRAZOLE
     Dosage: 1 DOSAGE FORMS DAILY;
  3. SKENAN [Suspect]
     Active Substance: MORPHINE SULFATE
     Dosage: 60 MILLIGRAM DAILY;
     Route: 048
  4. APRANAX 550 MG [Concomitant]
     Active Substance: NAPROXEN
     Dosage: 2 DOSAGE FORMS DAILY;
  5. ACTIQ [Suspect]
     Active Substance: FENTANYL CITRATE
     Indication: PRODUCT USED FOR UNKNOWN INDICATION
     Dosage: 15 TO 18 DF DAILY
     Route: 048
     Dates: end: 20160710
  6. VENLAFAXINE BLUEFISH LP 37.5 MG [Concomitant]
     Dosage: 2 DOSAGE FORMS DAILY;
  7. ACTISKENAN [Suspect]
     Active Substance: MORPHINE SULFATE
     Dosage: 30 MILLIGRAM DAILY;
     Route: 048
  8. IMOVANE [Concomitant]
     Active Substance: ZOPICLONE
     Dosage: .5 DOSAGE FORMS DAILY;

REACTIONS (4)
  - Muscle twitching [Unknown]
  - Drug dependence [Unknown]
  - Constipation [Unknown]
  - Asthenia [Unknown]
